FAERS Safety Report 14606617 (Version 1)
Quarter: 2018Q1

REPORT INFORMATION
  Report Type: Spontaneous
  Country: US (occurrence: US)
  Receive Date: 20180307
  Receipt Date: 20180307
  Transmission Date: 20180509
  Serious: No
  Sender: FDA-Public Use
  Company Number: US-TEVA-775466ACC

PATIENT
  Age: 66 Year
  Sex: Female
  Weight: 93.44 kg

DRUGS (1)
  1. GABAPENTIN. [Suspect]
     Active Substance: GABAPENTIN
     Indication: NEURALGIA
     Dosage: 300 MILLIGRAM DAILY;
     Route: 048
     Dates: start: 20170505

REACTIONS (7)
  - Myalgia [Recovered/Resolved]
  - Pain [Unknown]
  - Muscle spasms [Recovered/Resolved]
  - Gait disturbance [Unknown]
  - Feeling abnormal [Unknown]
  - Somnolence [Unknown]
  - Ataxia [Unknown]

NARRATIVE: CASE EVENT DATE: 20170506
